FAERS Safety Report 19085785 (Version 4)
Quarter: 2022Q2

REPORT INFORMATION
  Report Type: Report from Study
  Country: US (occurrence: None)
  Receive Date: 20210402
  Receipt Date: 20220620
  Transmission Date: 20220721
  Serious: Yes (Hospitalization, Other)
  Sender: FDA-Public Use
  Company Number: US-ROCHE-2782835

PATIENT
  Age: 60 Year
  Sex: Male
  Weight: 85.3 kg

DRUGS (11)
  1. OBINUTUZUMAB [Suspect]
     Active Substance: OBINUTUZUMAB
     Indication: Chronic lymphocytic leukaemia
     Dosage: 100 MG IV ON DAY 1, CYCLE 1?LAST ADMINISTERED DATE- 19/JAN/2021
     Route: 042
     Dates: start: 20200825, end: 20210119
  2. OBINUTUZUMAB [Suspect]
     Active Substance: OBINUTUZUMAB
     Route: 042
  3. OBINUTUZUMAB [Suspect]
     Active Substance: OBINUTUZUMAB
     Dosage: ON DAY 8, CYCLE 1
     Route: 042
  4. OBINUTUZUMAB [Suspect]
     Active Substance: OBINUTUZUMAB
     Dosage: ON DAY 15, CYCLE 1
     Route: 042
  5. OBINUTUZUMAB [Suspect]
     Active Substance: OBINUTUZUMAB
     Dosage: ON DAY 1, CYCLE 2-6
     Route: 042
  6. VENETOCLAX [Suspect]
     Active Substance: VENETOCLAX
     Indication: Chronic lymphocytic leukaemia
     Dosage: 1-7 CYCLE 3?LAST ADMINISTERED DATE- 22-JAN-2021, DRUG INTERRUPTED,?TOTAL DOSE ADMINISTERED THIS COUR
     Route: 048
     Dates: start: 20200825, end: 20210122
  7. VENETOCLAX [Suspect]
     Active Substance: VENETOCLAX
     Dosage: 8-14, CYCLE 3
     Route: 048
  8. VENETOCLAX [Suspect]
     Active Substance: VENETOCLAX
     Dosage: 15-21, CYCLE 3
     Route: 048
  9. VENETOCLAX [Suspect]
     Active Substance: VENETOCLAX
     Dosage: 22-28, CYCLE 3
     Route: 048
  10. VENETOCLAX [Suspect]
     Active Substance: VENETOCLAX
     Dosage: 1-28, CYCLES 4-14
     Route: 048
  11. IBRUTINIB [Suspect]
     Active Substance: IBRUTINIB
     Indication: Chronic lymphocytic leukaemia
     Dosage: ON DAYS 1-28, CYCLES 1-19,?TOTAL DOSE ADMINISTERED THIS COURSE (DOSE)- 1680 MG, LAST ADMINISTERED DA
     Route: 048
     Dates: start: 20200825, end: 20210122

REACTIONS (3)
  - Pericarditis [Recovered/Resolved with Sequelae]
  - Hypoglycaemia [Recovered/Resolved]
  - Pericardial effusion [Recovered/Resolved]

NARRATIVE: CASE EVENT DATE: 20210123
